FAERS Safety Report 12553475 (Version 2)
Quarter: 2016Q3

REPORT INFORMATION
  Report Type: Report from Study
  Country: JP (occurrence: JP)
  Receive Date: 20160713
  Receipt Date: 20160929
  Transmission Date: 20161109
  Serious: Yes (Other)
  Sender: FDA-Public Use
  Company Number: JP-JNJFOC-20160702093

PATIENT
  Age: 8 Year
  Sex: Female
  Weight: 33 kg

DRUGS (6)
  1. ASPIRIN. [Concomitant]
     Active Substance: ASPIRIN
     Indication: KAWASAKI^S DISEASE
     Route: 048
     Dates: start: 20160519, end: 20160615
  2. CEFOTAXIME SODIUM [Concomitant]
     Active Substance: CEFOTAXIME SODIUM
     Indication: PNEUMONIA
     Dosage: 3 GRAMS
     Route: 048
     Dates: start: 20160509, end: 20160511
  3. REMICADE [Suspect]
     Active Substance: INFLIXIMAB
     Indication: KAWASAKI^S DISEASE
     Route: 042
     Dates: start: 20160509
  4. CICLOSPORIN [Concomitant]
     Active Substance: CYCLOSPORINE
     Indication: KAWASAKI^S DISEASE
     Route: 048
     Dates: start: 20160513, end: 20160520
  5. VENOGLOBULIN IH [Suspect]
     Active Substance: HUMAN IMMUNOGLOBULIN G
     Indication: KAWASAKI^S DISEASE
     Route: 065
     Dates: start: 20160511
  6. ASPIRIN. [Concomitant]
     Active Substance: ASPIRIN
     Indication: KAWASAKI^S DISEASE
     Route: 048
     Dates: start: 20160509, end: 20160518

REACTIONS (1)
  - Hyperviscosity syndrome [Recovered/Resolved]

NARRATIVE: CASE EVENT DATE: 20160509
